FAERS Safety Report 4816036-2 (Version None)
Quarter: 2005Q4

REPORT INFORMATION
  Report Type: 
  Country: None (occurrence: None)
  Receive Date: 20051031
  Receipt Date: 20050302
  Transmission Date: 20060501
  Serious: Yes (Hospitalization)
  Sender: FDA-Public Use
  Company Number: JP-ROCHE-397819

PATIENT
  Age: 73 Year
  Sex: Male

DRUGS (5)
  1. TAMIFLU [Suspect]
     Indication: INFLUENZA
     Route: 048
     Dates: start: 20050224, end: 20050228
  2. CRAVIT [Concomitant]
     Route: 048
     Dates: start: 20050226, end: 20050227
  3. AMLODIPINE BESYLATE [Concomitant]
     Route: 048
     Dates: start: 19990615
  4. HARNAL [Concomitant]
     Route: 048
     Dates: start: 20040415
  5. DEPAS [Concomitant]
     Route: 048
     Dates: start: 20000615

REACTIONS (4)
  - BILE DUCT STONE [None]
  - HEPATIC FUNCTION ABNORMAL [None]
  - JAUNDICE [None]
  - PNEUMONIA [None]
